FAERS Safety Report 15724518 (Version 1)
Quarter: 2018Q4

REPORT INFORMATION
  Report Type: Spontaneous
  Country: US (occurrence: US)
  Receive Date: 20181214
  Receipt Date: 20181214
  Transmission Date: 20190205
  Serious: Yes (Hospitalization)
  Sender: FDA-Public Use
  Company Number: US-OTSUKA-2018_026062

PATIENT
  Age: 55 Year
  Sex: Male

DRUGS (13)
  1. ABILIFY [Suspect]
     Active Substance: ARIPIPRAZOLE
     Indication: PRODUCT USED FOR UNKNOWN INDICATION
     Dosage: UNK
     Route: 065
     Dates: start: 20110101
  2. ABILIFY [Suspect]
     Active Substance: ARIPIPRAZOLE
     Dosage: 20 MG, QD AT BEDTIME
     Route: 048
     Dates: start: 20130725
  3. ABILIFY [Suspect]
     Active Substance: ARIPIPRAZOLE
     Dosage: 20 MG ONE-HALF TABLET AT BEDTIME
     Route: 048
     Dates: start: 20150206, end: 20160207
  4. ABILIFY [Suspect]
     Active Substance: ARIPIPRAZOLE
     Dosage: 20 MG ONE-HALF TABLET AT BEDTIME
     Route: 048
     Dates: start: 20150120, end: 20160121
  5. ABILIFY [Suspect]
     Active Substance: ARIPIPRAZOLE
     Dosage: 20 MG ONE-HALF TABLET AT BEDTIME
     Route: 048
     Dates: start: 20160919, end: 20170920
  6. ABILIFY [Suspect]
     Active Substance: ARIPIPRAZOLE
     Dosage: 20 MG, QD AT BEDTIME
     Route: 048
     Dates: start: 20120402, end: 20120404
  7. ABILIFY [Suspect]
     Active Substance: ARIPIPRAZOLE
     Dosage: 30 MG, QD AT BEDTIME
     Route: 048
     Dates: start: 20120404, end: 20120412
  8. ABILIFY [Suspect]
     Active Substance: ARIPIPRAZOLE
     Dosage: 20 MG, AT BEDTIME
     Route: 048
     Dates: start: 20130404, end: 20140405
  9. ABILIFY [Suspect]
     Active Substance: ARIPIPRAZOLE
     Dosage: 5 MG, AT BEDTIME
     Route: 048
     Dates: start: 20120328, end: 20120330
  10. ABILIFY [Suspect]
     Active Substance: ARIPIPRAZOLE
     Dosage: 30 MG, AT BEDTIME
     Route: 048
     Dates: start: 20120411, end: 20130412
  11. TRAZODONE [Concomitant]
     Active Substance: TRAZODONE HYDROCHLORIDE
     Indication: PRODUCT USED FOR UNKNOWN INDICATION
     Dosage: 100 MG, AT BEDTIME
     Route: 065
  12. ABILIFY [Suspect]
     Active Substance: ARIPIPRAZOLE
     Dosage: 30 MG, AT BEDTIME
     Route: 048
     Dates: start: 20121115
  13. ABILIFY [Suspect]
     Active Substance: ARIPIPRAZOLE
     Dosage: 20 MG, QD AT BEDTIME
     Route: 048
     Dates: start: 20120330, end: 20120402

REACTIONS (20)
  - Alcoholism [Unknown]
  - Hallucination, auditory [Unknown]
  - Hyperlipidaemia [Unknown]
  - Condition aggravated [Recovered/Resolved]
  - Blindness [Unknown]
  - Hallucination, visual [Unknown]
  - Obsessive-compulsive disorder [Unknown]
  - Hypertension [Unknown]
  - Divorced [Unknown]
  - Glaucoma [Unknown]
  - Drug dependence [Unknown]
  - Gastrooesophageal reflux disease [Unknown]
  - Unemployment [Unknown]
  - Homeless [Unknown]
  - Suicidal ideation [Recovering/Resolving]
  - Substance-induced psychotic disorder [Recovering/Resolving]
  - Depression [Recovering/Resolving]
  - Gambling disorder [Recovered/Resolved]
  - Impulse-control disorder [Unknown]
  - Economic problem [Unknown]
